FAERS Safety Report 14319170 (Version 1)
Quarter: 2017Q4

REPORT INFORMATION
  Report Type: Spontaneous
  Country: SE (occurrence: SE)
  Receive Date: 20171222
  Receipt Date: 20171222
  Transmission Date: 20180321
  Serious: Yes (Hospitalization)
  Sender: FDA-Public Use
  Company Number: SE-MYLANLABS-2017M1080419

PATIENT
  Age: 60 Year
  Sex: Male

DRUGS (8)
  1. CLOPIDOGREL [Suspect]
     Active Substance: CLOPIDOGREL BISULFATE
     Route: 048
     Dates: start: 20171107
  2. ATORVASTATIN [Concomitant]
     Active Substance: ATORVASTATIN
  3. CARVEDILOL AUROBINDO [Concomitant]
     Active Substance: CARVEDILOL
  4. GLYTRIN                            /00003201/ [Concomitant]
     Dosage: 1-2 DOSER VID BEHOV
     Dates: start: 20171107
  5. TROMBYL [Concomitant]
     Active Substance: ASPIRIN
  6. SALURES [Concomitant]
     Active Substance: BENDROFLUMETHIAZIDE
  7. INSPRA [Concomitant]
     Active Substance: EPLERENONE
  8. RAMIPRIL. [Concomitant]
     Active Substance: RAMIPRIL

REACTIONS (1)
  - Rash pruritic [Recovered/Resolved]

NARRATIVE: CASE EVENT DATE: 20171109
